FAERS Safety Report 18710518 (Version 10)
Quarter: 2022Q3

REPORT INFORMATION
  Report Type: Other
  Country: US (occurrence: None)
  Receive Date: 20210107
  Receipt Date: 20220726
  Transmission Date: 20221027
  Serious: No
  Sender: FDA-Public Use
  Company Number: US-ROCHE-2571657

PATIENT
  Sex: Female
  Weight: 140.74 kg

DRUGS (20)
  1. OCREVUS [Suspect]
     Active Substance: OCRELIZUMAB
     Indication: Relapsing multiple sclerosis
     Dosage: DATE OF TREATMENT: /JUN/2019, 12/JUL/2019, 31/MAY/2022
     Route: 042
     Dates: start: 20190101
  2. OCREVUS [Suspect]
     Active Substance: OCRELIZUMAB
     Indication: Multiple sclerosis
     Dosage: STRENGTH: 300 MG/10 ML IV SOLUTION.
     Route: 042
  3. BENADRYL [Concomitant]
     Active Substance: DIPHENHYDRAMINE HYDROCHLORIDE
     Indication: Hypersensitivity
     Dosage: 2 PILLS AT NIGHT; DOSE WAS UNKNOWN
     Route: 048
  4. EQUATE (UNITED STATES) [Concomitant]
     Indication: Hypersensitivity
     Dosage: WALMART BRAND, 2 PILLS PER DAY; DOSE UNKNOWN?PILLS
     Route: 048
  5. GABAPENTIN [Concomitant]
     Active Substance: GABAPENTIN
     Indication: Neuralgia
     Dosage: TWO-300 MG CAPSULES THREE TIMES PER DAY
     Route: 048
  6. PROZAC [Concomitant]
     Active Substance: FLUOXETINE HYDROCHLORIDE
     Indication: Depression
     Dosage: (3) 20 MG CAPSULES IN THE MORNING
     Route: 048
  7. PROZAC [Concomitant]
     Active Substance: FLUOXETINE HYDROCHLORIDE
     Dosage: AT NIGHT
     Route: 048
  8. VITAMIN B COMPLEX [Concomitant]
     Active Substance: CYANOCOBALAMIN\DEXPANTHENOL\NIACINAMIDE\PYRIDOXINE HYDROCHLORIDE\RIBOFLAVIN 5^-PHOSPHATE SODIUM\THIA
     Dosage: DOSE WAS UNKNOWN
     Route: 048
  9. POTASSIUM [Concomitant]
     Active Substance: POTASSIUM
     Indication: Gastric bypass
     Dosage: DOSE WAS UNKNOWN
     Route: 048
  10. PROTONIX [Concomitant]
     Active Substance: PANTOPRAZOLE SODIUM
     Indication: Gastric ulcer
     Route: 048
  11. PROTONIX [Concomitant]
     Active Substance: PANTOPRAZOLE SODIUM
     Indication: Hyperchlorhydria
  12. NEURONTIN [Concomitant]
     Active Substance: GABAPENTIN
     Indication: Myalgia
     Route: 048
  13. NEURONTIN [Concomitant]
     Active Substance: GABAPENTIN
     Indication: Arthralgia
  14. DALFAMPRIDINE [Concomitant]
     Active Substance: DALFAMPRIDINE
     Route: 048
  15. ASPIRIN [Concomitant]
     Active Substance: ASPIRIN
     Indication: Thrombosis
     Dosage: IN THE MORNING
     Route: 048
  16. ALEVE [Concomitant]
     Active Substance: NAPROXEN SODIUM
     Indication: Arthritis
     Dosage: IN THE MORNING
     Route: 048
  17. PROTONIX [Concomitant]
     Active Substance: PANTOPRAZOLE SODIUM
     Route: 048
  18. NORETHINDRONE [Concomitant]
     Active Substance: NORETHINDRONE
     Dosage: IN THE MORNING
     Route: 048
  19. VITAMIN C [Concomitant]
     Active Substance: ASCORBIC ACID
     Indication: Gastric bypass
     Route: 048
  20. MAGNESIUM [Concomitant]
     Active Substance: MAGNESIUM
     Indication: Gastric bypass
     Route: 048

REACTIONS (23)
  - Eye pruritus [Recovered/Resolved]
  - Eye discharge [Not Recovered/Not Resolved]
  - Vision blurred [Not Recovered/Not Resolved]
  - Therapeutic response shortened [Unknown]
  - Hypoaesthesia [Not Recovered/Not Resolved]
  - Neuralgia [Not Recovered/Not Resolved]
  - Burning sensation [Not Recovered/Not Resolved]
  - Balance disorder [Not Recovered/Not Resolved]
  - COVID-19 [Recovered/Resolved]
  - Feeling cold [Not Recovered/Not Resolved]
  - Fall [Unknown]
  - Immunodeficiency [Recovered/Resolved]
  - Eye infection [Unknown]
  - Urinary incontinence [Unknown]
  - Visual impairment [Unknown]
  - Anxiety [Unknown]
  - Swelling [Unknown]
  - Pain [Unknown]
  - Peripheral coldness [Not Recovered/Not Resolved]
  - Restless legs syndrome [Unknown]
  - Hypersomnia [Not Recovered/Not Resolved]
  - Off label use [Unknown]
  - Muscular weakness [Unknown]

NARRATIVE: CASE EVENT DATE: 20190101
